FAERS Safety Report 9867315 (Version 1)
Quarter: 2014Q1

REPORT INFORMATION
  Report Type: Spontaneous
  Country: KR (occurrence: KR)
  Receive Date: 20140204
  Receipt Date: 20140204
  Transmission Date: 20141002
  Serious: Yes (Other)
  Sender: FDA-Public Use
  Company Number: PHHY2014KR010350

PATIENT
  Age: 24 Year
  Sex: Male

DRUGS (6)
  1. IMATINIB [Suspect]
     Indication: ACUTE LYMPHOCYTIC LEUKAEMIA
  2. VINCRISTINE [Suspect]
     Indication: ACUTE LYMPHOCYTIC LEUKAEMIA
  3. PREDNISOLONE [Suspect]
  4. L-ASPARAGINASE [Suspect]
     Indication: ACUTE LYMPHOCYTIC LEUKAEMIA
  5. DAUNORUBICIN [Suspect]
     Indication: ACUTE LYMPHOCYTIC LEUKAEMIA
  6. DASATINIB [Suspect]
     Dosage: 140 MG, PER DAY

REACTIONS (9)
  - Dilatation ventricular [Recovering/Resolving]
  - Cardiac murmur [Recovering/Resolving]
  - Pulmonary congestion [Recovering/Resolving]
  - Tricuspid valve incompetence [Recovering/Resolving]
  - Pulmonary arterial hypertension [Recovering/Resolving]
  - Dyspnoea [Recovering/Resolving]
  - Pleural effusion [Recovering/Resolving]
  - Nausea [Unknown]
  - Vomiting [Unknown]
